FAERS Safety Report 11265736 (Version 3)
Quarter: 2017Q1

REPORT INFORMATION
  Report Type: Spontaneous
  Country: DK (occurrence: DK)
  Receive Date: 20150713
  Receipt Date: 20170131
  Transmission Date: 20170428
  Serious: Yes (Hospitalization, Disabling)
  Sender: FDA-Public Use
  Company Number: DK-MYLANLABS-2015M1022033

PATIENT

DRUGS (1)
  1. ALENDRONATE [Suspect]
     Active Substance: ALENDRONATE SODIUM
     Indication: OSTEOPOROSIS
     Dosage: UNK
     Dates: start: 200809, end: 20130802

REACTIONS (16)
  - Sensory disturbance [Not Recovered/Not Resolved]
  - Pain [Not Recovered/Not Resolved]
  - Drooling [Not Recovered/Not Resolved]
  - Osteonecrosis of jaw [Unknown]
  - Eating disorder [Not Recovered/Not Resolved]
  - Exposed bone in jaw [Unknown]
  - Jaw operation [Recovered/Resolved]
  - Back pain [Unknown]
  - Nerve injury [Not Recovered/Not Resolved]
  - Foot operation [Recovered/Resolved]
  - Pain in extremity [Unknown]
  - Tongue injury [Unknown]
  - Foot fracture [Unknown]
  - Lumbar vertebral fracture [Unknown]
  - Tooth extraction [Recovered/Resolved]
  - Sequestrectomy [Recovered/Resolved]

NARRATIVE: CASE EVENT DATE: 2013
